FAERS Safety Report 19597490 (Version 1)
Quarter: 2021Q3

REPORT INFORMATION
  Report Type: Spontaneous
  Country: CZ (occurrence: CZ)
  Receive Date: 20210723
  Receipt Date: 20210723
  Transmission Date: 20211014
  Serious: Yes (Hospitalization)
  Sender: FDA-Public Use
  Company Number: CZ-TEVA-2021-CZ-1935732

PATIENT
  Age: 58 Year
  Sex: Male

DRUGS (3)
  1. BLEOMYCIN [Suspect]
     Active Substance: BLEOMYCIN SULFATE
     Indication: TESTIS CANCER
     Dosage: RECEIVED AT 75% OF THE ORIGINAL DOSE AS PART OF BEP CHEMOTHERAPY (SINGLE SERIES)
     Route: 065
     Dates: start: 20170322, end: 20170326
  2. CISPLATIN. [Suspect]
     Active Substance: CISPLATIN
     Indication: TESTIS CANCER
     Dosage: RECEIVED AT 75% OF THE ORIGINAL DOSE AS PART OF BEP CHEMOTHERAPY (SINGLE SERIES)
     Route: 065
     Dates: start: 20170322, end: 20170326
  3. ETOPOSIDE. [Suspect]
     Active Substance: ETOPOSIDE
     Indication: TESTIS CANCER
     Dosage: RECEIVED AT 75% OF THE ORIGINAL DOSE AS PART OF BEP CHEMOTHERAPY (SINGLE SERIES)
     Route: 065
     Dates: start: 20170322, end: 20170326

REACTIONS (3)
  - Febrile neutropenia [Recovered/Resolved]
  - Blood creatinine increased [Recovered/Resolved]
  - Thrombocytopenia [Recovering/Resolving]

NARRATIVE: CASE EVENT DATE: 2017
